FAERS Safety Report 25918949 (Version 1)
Quarter: 2025Q4

REPORT INFORMATION
  Report Type: Spontaneous
  Country: EU (occurrence: EU)
  Receive Date: 20251014
  Receipt Date: 20251014
  Transmission Date: 20260118
  Serious: Yes (Other)
  Sender: AMNEAL
  Company Number: EU-AMNEAL PHARMACEUTICALS-2025-AMRX-03917

PATIENT
  Age: 21 Year
  Sex: Male

DRUGS (1)
  1. ARIPIPRAZOLE [Suspect]
     Active Substance: ARIPIPRAZOLE
     Indication: Psychotic disorder
     Dosage: 20 MG/DAY
     Route: 065

REACTIONS (1)
  - Acute myopia [Recovering/Resolving]
